FAERS Safety Report 6561429-9 (Version None)
Quarter: 2010Q1

REPORT INFORMATION
  Report Type: 
  Country: None (occurrence: None)
  Receive Date: 20100130
  Receipt Date: 20091012
  Transmission Date: 20100710
  Serious: No
  Sender: FDA-Public Use
  Company Number: US-ABBOTT-09P-163-0602722-00

PATIENT
  Sex: Female

DRUGS (2)
  1. HUMIRA [Suspect]
     Indication: PSORIASIS
     Route: 058
     Dates: start: 20080314, end: 20090901
  2. HUMIRA [Suspect]
     Indication: PSORIATIC ARTHROPATHY

REACTIONS (7)
  - ARTHRITIS [None]
  - CHEST PAIN [None]
  - FATIGUE [None]
  - HYPERAESTHESIA [None]
  - MIGRAINE [None]
  - PAIN OF SKIN [None]
  - PSORIASIS [None]
